FAERS Safety Report 9939645 (Version 1)
Quarter: 2014Q1

REPORT INFORMATION
  Report Type: Report from Study
  Country: US (occurrence: US)
  Receive Date: 20140303
  Receipt Date: 20140303
  Transmission Date: 20141002
  Serious: No
  Sender: FDA-Public Use
  Company Number: US-ABBVIE-13P-163-1037834-00

PATIENT
  Age: 69 Year
  Sex: Female

DRUGS (9)
  1. HUMIRA [Suspect]
     Indication: RHEUMATOID ARTHRITIS
  2. VITAMIN D [Concomitant]
     Indication: PRODUCT USED FOR UNKNOWN INDICATION
  3. METHOTREXATE [Concomitant]
     Indication: PRODUCT USED FOR UNKNOWN INDICATION
  4. ATENOLOL [Concomitant]
     Indication: BLOOD PRESSURE
  5. HYDROCHLOROTHIAZIDE [Concomitant]
     Indication: BLOOD PRESSURE
  6. GENERIC CHOLESTEROL MEDICATION [Concomitant]
     Indication: BLOOD CHOLESTEROL
  7. PAROXETINE [Concomitant]
     Indication: DEPRESSION
  8. PRESERVISION EYE VITAMIN AND MINERAL SUPPL. [Concomitant]
     Indication: MACULAR DEGENERATION
  9. LEUCOVORIN VITAMINS [Concomitant]
     Indication: PROPHYLAXIS

REACTIONS (3)
  - Influenza [Unknown]
  - Insomnia [Unknown]
  - Inappropriate schedule of drug administration [Unknown]
